FAERS Safety Report 8959211 (Version 1)
Quarter: 2012Q4

REPORT INFORMATION
  Report Type: Report from Study
  Country: AU (occurrence: AU)
  Receive Date: 20121212
  Receipt Date: 20121212
  Transmission Date: 20130627
  Serious: Yes (Life-Threatening, Hospitalization)
  Sender: FDA-Public Use
  Company Number: AU-MERCK-1212AUS003809

PATIENT
  Age: 61 Year
  Sex: Male

DRUGS (14)
  1. RIBAVIRIN [Suspect]
     Indication: HEPATITIS C
     Dosage: 1200 mg, qd
     Route: 048
     Dates: start: 20121101, end: 20121123
  2. PEGINTERFERON ALFA-2A [Suspect]
     Indication: HEPATITIS C
     Dosage: 180 Microgram, qw
     Route: 058
     Dates: start: 20121101, end: 20121123
  3. PEGINTERFERON ALFA-2A [Suspect]
     Dosage: UNK
     Route: 058
     Dates: start: 20121127
  4. DACLATASVIR [Suspect]
     Indication: HEPATITIS C
     Dosage: 30 mg, qd
     Route: 048
     Dates: start: 20121101, end: 20121123
  5. DACLATASVIR [Suspect]
     Dosage: UNK
     Route: 048
     Dates: start: 20121127
  6. EFFEXOR XR [Concomitant]
     Dosage: UNK
     Dates: start: 20041222
  7. COVERSYL PLUS (INDAPAMIDE (+) PERINDOPRIL ERBUMINE) [Concomitant]
     Dosage: UNK
     Dates: start: 20120808, end: 20121127
  8. DARUNAVIR [Concomitant]
     Dosage: UNK
     Dates: start: 20120411
  9. RITONAVIR [Concomitant]
     Dosage: UNK
     Dates: start: 20120411
  10. TRUVADA [Concomitant]
     Dosage: UNK
     Dates: start: 20071113
  11. LASIX (FUROSEMIDE) [Concomitant]
     Dosage: UNK
     Dates: start: 20070517, end: 20121127
  12. ASPIRIN [Concomitant]
     Dosage: UNK
     Dates: start: 201109, end: 20121124
  13. TEMAZEPAM [Concomitant]
  14. ACETAMINOPHEN [Concomitant]

REACTIONS (3)
  - Hypokalaemia [Recovered/Resolved]
  - Hyponatraemia [Recovered/Resolved]
  - Anaemia [Recovering/Resolving]
